FAERS Safety Report 9322870 (Version 2)
Quarter: 2013Q3

REPORT INFORMATION
  Report Type: Report from Study
  Country: AU (occurrence: AU)
  Receive Date: 20130602
  Receipt Date: 20130722
  Transmission Date: 20140515
  Serious: Yes (Hospitalization)
  Sender: FDA-Public Use
  Company Number: PHHY2013AU055076

PATIENT
  Age: 89 Year
  Sex: Female

DRUGS (5)
  1. ACLASTA [Suspect]
     Dosage: 5 MG, UNK
     Route: 042
     Dates: start: 20110629
  2. ACLASTA [Suspect]
     Dosage: 5 MG, UNK
     Route: 042
     Dates: start: 20120619
  3. OSTRON                             /07791201/ [Concomitant]
     Indication: VITAMIN D DEFICIENCY
     Dosage: MORE THAN YEAR
     Route: 048
  4. LIPITOR [Concomitant]
     Indication: LIPIDS INCREASED
     Dosage: MORE THAN 10 YEARS
     Route: 048
  5. TEGRETOL [Concomitant]
     Indication: NEURALGIA
     Dosage: UNK UKN, UNK
     Route: 048
     Dates: start: 20130618, end: 20130621

REACTIONS (2)
  - Squamous cell carcinoma of the vulva [Recovered/Resolved]
  - Fall [Recovered/Resolved]
